FAERS Safety Report 21116331 (Version 1)
Quarter: 2022Q3

REPORT INFORMATION
  Report Type: Spontaneous
  Country: US (occurrence: US)
  Receive Date: 20220721
  Receipt Date: 20220721
  Transmission Date: 20221027
  Serious: No
  Sender: FDA-Public Use
  Company Number: US-JNJFOC-20220732686

PATIENT
  Sex: Male

DRUGS (1)
  1. ZYTIGA [Suspect]
     Active Substance: ABIRATERONE ACETATE
     Indication: Product used for unknown indication
     Dosage: TAKE TWO TABLETS DAILY
     Route: 048
     Dates: start: 20220531

REACTIONS (3)
  - Rash [Unknown]
  - Mouth swelling [Unknown]
  - Nausea [Unknown]
